FAERS Safety Report 9099072 (Version 1)
Quarter: 2013Q1

REPORT INFORMATION
  Report Type: Spontaneous
  Country: ES (occurrence: ES)
  Receive Date: 20130213
  Receipt Date: 20130213
  Transmission Date: 20140127
  Serious: Yes (Other)
  Sender: FDA-Public Use
  Company Number: ES-PFIZER INC-2013053686

PATIENT
  Age: 59 Year
  Sex: Male

DRUGS (1)
  1. TAZOCEL [Suspect]
     Indication: PNEUMONIA
     Dosage: 4 G, 3X/DAY
     Route: 042
     Dates: start: 20070929, end: 20071017

REACTIONS (2)
  - Drug reaction with eosinophilia and systemic symptoms [Recovered/Resolved]
  - Hypertransaminasaemia [Recovered/Resolved]
